FAERS Safety Report 17511232 (Version 1)
Quarter: 2020Q1

REPORT INFORMATION
  Report Type: Spontaneous
  Country: DE (occurrence: DE)
  Receive Date: 20200306
  Receipt Date: 20200306
  Transmission Date: 20200409
  Serious: Yes (Disabling)
  Sender: FDA-Public Use
  Company Number: DE-ANIPHARMA-2020-DE-000040

PATIENT
  Age: 31 Year
  Sex: Male
  Weight: 77 kg

DRUGS (6)
  1. ATACAND [Suspect]
     Active Substance: CANDESARTAN CILEXETIL
     Indication: PRODUCT USED FOR UNKNOWN INDICATION
     Dosage: 16 MG DAILY, REPORTED AS LONG TERM
     Route: 048
     Dates: start: 19980403
  2. OMEPRAZOLE. [Suspect]
     Active Substance: OMEPRAZOLE
     Dosage: 20 MG DAILY
     Route: 048
  3. DILATREND [Suspect]
     Active Substance: CARVEDILOL
     Dosage: UNKNOWN
     Route: 065
  4. NEORECORMON [Suspect]
     Active Substance: ERYTHROPOIETIN
     Dosage: 2000 DF UNK / 3000 DF UNK / 4000 DF UNK / 5000 DF UNK / 3000 DF UNK / 5000 DF UNK
     Route: 058
     Dates: start: 20010413
  5. THIOGAMMA [Suspect]
     Active Substance: .ALPHA.-LIPOIC ACID
     Dosage: 600 DF UNK
     Route: 048
  6. CALCIUM ACETATE. [Suspect]
     Active Substance: CALCIUM ACETATE
     Dosage: UNKNOWN
     Route: 065

REACTIONS (2)
  - Drug ineffective [Recovered/Resolved with Sequelae]
  - Refractory cytopenia with unilineage dysplasia [Recovered/Resolved with Sequelae]

NARRATIVE: CASE EVENT DATE: 200205
